FAERS Safety Report 7010325-1 (Version None)
Quarter: 2010Q3

REPORT INFORMATION
  Report Type: 
  Country: None (occurrence: None)
  Receive Date: 20100923
  Receipt Date: 20100916
  Transmission Date: 20110219
  Serious: Yes (Disabling)
  Sender: FDA-Public Use
  Company Number: B0674831A

PATIENT
  Age: 50 Year
  Sex: Male

DRUGS (6)
  1. PAROXETINE HCL [Suspect]
     Indication: PANIC DISORDER
     Dosage: 20MG PER DAY
     Route: 048
  2. SERTRALINE HYDROCHLORIDE [Suspect]
     Dosage: 50MG PER DAY
     Route: 048
  3. PROPRANOLOL [Concomitant]
  4. DIAZEPAM [Concomitant]
  5. OMEPRAZOLE [Concomitant]
  6. SIMVASTATIN [Concomitant]

REACTIONS (1)
  - PRURITUS [None]
